FAERS Safety Report 20516899 (Version 1)
Quarter: 2022Q1

REPORT INFORMATION
  Report Type: Spontaneous
  Country: JP (occurrence: JP)
  Receive Date: 20220225
  Receipt Date: 20220225
  Transmission Date: 20220423
  Serious: Yes (Other)
  Sender: FDA-Public Use
  Company Number: JP-ASTELLAS-2022JP003233

PATIENT
  Age: 8 Decade
  Sex: Male

DRUGS (1)
  1. PADCEV [Suspect]
     Active Substance: ENFORTUMAB VEDOTIN-EJFV
     Indication: Malignant neoplasm of renal pelvis
     Dosage: 1 MG/KG/DAY, UNKNOWN FREQ.
     Route: 041
     Dates: start: 20211220

REACTIONS (6)
  - Hyperkalaemia [Unknown]
  - Anaemia [Unknown]
  - Tumour associated fever [Unknown]
  - Hyperuricaemia [Unknown]
  - Hypercalcaemia [Unknown]
  - Cancer pain [Unknown]
